FAERS Safety Report 5332686-1 (Version None)
Quarter: 2007Q2

REPORT INFORMATION
  Report Type: 
  Country: None (occurrence: None)
  Receive Date: 20070523
  Receipt Date: 20070511
  Transmission Date: 20071010
  Serious: Yes (Life-Threatening, Hospitalization)
  Sender: FDA-Public Use
  Company Number: PL-PFIZER INC-2007030688

PATIENT
  Sex: Male
  Weight: 84 kg

DRUGS (4)
  1. SU-011,248 [Suspect]
     Indication: RENAL CELL CARCINOMA STAGE UNSPECIFIED
     Route: 048
     Dates: start: 20050215, end: 20070416
  2. ZOLADEX [Concomitant]
     Route: 058
     Dates: start: 20061220
  3. FOLIC ACID [Concomitant]
     Route: 048
  4. CORDAFEN [Concomitant]
     Route: 048

REACTIONS (1)
  - EMBOLISM [None]
